FAERS Safety Report 23510450 (Version 1)
Quarter: 2024Q1

REPORT INFORMATION
  Report Type: Spontaneous
  Country: NZ (occurrence: None)
  Receive Date: 20240211
  Receipt Date: 20240211
  Transmission Date: 20240410
  Serious: Yes (Other)
  Sender: FDA-Public Use
  Company Number: NZ-ROCHE-3424100

PATIENT
  Age: 9 Year
  Sex: Male

DRUGS (1)
  1. HEMLIBRA [Suspect]
     Active Substance: EMICIZUMAB-KXWH
     Indication: Product used for unknown indication
     Route: 065

REACTIONS (6)
  - Haematoma [Unknown]
  - Hand fracture [Unknown]
  - Injury [Unknown]
  - Pain in extremity [Unknown]
  - Contusion [Unknown]
  - Soft tissue swelling [Unknown]
